FAERS Safety Report 4660271-3 (Version None)
Quarter: 2005Q2

REPORT INFORMATION
  Report Type: 
  Country: None (occurrence: None)
  Receive Date: 20050512
  Receipt Date: 20050429
  Transmission Date: 20051028
  Serious: Yes (Death, Other)
  Sender: FDA-Public Use
  Company Number: 2005-04-1535

PATIENT
  Sex: Female

DRUGS (5)
  1. ASPIRIN [Suspect]
     Indication: DRUG USE FOR UNKNOWN INDICATION
     Route: 065
     Dates: start: 20050101, end: 20050101
  2. CLOPIDOGREL BISULFATE [Suspect]
     Indication: DRUG USE FOR UNKNOWN INDICATION
     Dosage: 75MG PER DAY
     Route: 065
     Dates: start: 20050101, end: 20050101
  3. ENOXAPARIN SODIUM [Suspect]
     Route: 058
     Dates: start: 20050101, end: 20050101
  4. HEPARIN [Suspect]
     Indication: THERAPEUTIC PROCEDURE
     Route: 065
     Dates: start: 20041201, end: 20041201
  5. INTEGRILIN [Concomitant]
     Indication: ANGIOPLASTY
     Route: 042
     Dates: start: 20041201, end: 20050101

REACTIONS (5)
  - DEATH [None]
  - HAEMOGLOBIN INCREASED [None]
  - HAEMORRHAGE INTRACRANIAL [None]
  - MYOCARDIAL INFARCTION [None]
  - VOMITING [None]
